FAERS Safety Report 6749447-9 (Version None)
Quarter: 2010Q2

REPORT INFORMATION
  Report Type: 
  Country: None (occurrence: None)
  Receive Date: 20100601
  Receipt Date: 20100519
  Transmission Date: 20101027
  Serious: Yes (Hospitalization)
  Sender: FDA-Public Use
  Company Number: DE-ROCHE-705562

PATIENT
  Sex: Female

DRUGS (3)
  1. AVASTIN [Suspect]
     Indication: METASTATIC RENAL CELL CARCINOMA
     Dosage: 3 SEPARATE DOSES ON 22-MAR-2010, 6-APR-2010 AND ON 21-APR-2010
     Route: 042
     Dates: start: 20100322, end: 20100421
  2. INTERFERON ALFA [Concomitant]
     Indication: METASTATIC RENAL CELL CARCINOMA
  3. INTERFERON ALFA [Concomitant]

REACTIONS (1)
  - SKIN ULCER [None]
